FAERS Safety Report 21658971 (Version 4)
Quarter: 2023Q1

REPORT INFORMATION
  Report Type: Spontaneous
  Country: US (occurrence: US)
  Receive Date: 20221129
  Receipt Date: 20230216
  Transmission Date: 20230417
  Serious: No
  Sender: FDA-Public Use
  Company Number: US-BEH-2022152366

PATIENT
  Age: 69 Year
  Sex: Male
  Weight: 90.703 kg

DRUGS (4)
  1. HIZENTRA [Suspect]
     Active Substance: HUMAN IMMUNOGLOBULIN G
     Indication: Chronic inflammatory demyelinating polyradiculoneuropathy
     Dosage: 20 GRAM, QW
     Route: 058
     Dates: start: 20221118
  2. HIZENTRA [Suspect]
     Active Substance: HUMAN IMMUNOGLOBULIN G
     Dosage: 0.2 G/KG, QW
     Route: 058
     Dates: start: 20220321
  3. HIZENTRA [Suspect]
     Active Substance: HUMAN IMMUNOGLOBULIN G
     Dosage: UNK
     Route: 065
     Dates: start: 20221207
  4. HIZENTRA [Suspect]
     Active Substance: HUMAN IMMUNOGLOBULIN G
     Dosage: HALF DOSE
     Route: 065
     Dates: start: 202211

REACTIONS (7)
  - Weight decreased [Unknown]
  - Abdominal discomfort [Recovered/Resolved]
  - No adverse event [Recovered/Resolved]
  - Inappropriate schedule of product administration [Recovered/Resolved]
  - Vomiting [Recovered/Resolved]
  - Injection site swelling [Recovered/Resolved]
  - Injection site pruritus [Recovered/Resolved]

NARRATIVE: CASE EVENT DATE: 20220101
